FAERS Safety Report 21240322 (Version 2)
Quarter: 2022Q3

REPORT INFORMATION
  Report Type: Report from Study
  Country: CA (occurrence: CA)
  Receive Date: 20220822
  Receipt Date: 20220830
  Transmission Date: 20221027
  Serious: Yes (Hospitalization)
  Sender: FDA-Public Use
  Company Number: CA-JNJFOC-20220831691

PATIENT
  Age: 46 Year
  Sex: Female
  Weight: 92 kg

DRUGS (1)
  1. REMICADE [Suspect]
     Active Substance: INFLIXIMAB
     Indication: Crohn^s disease
     Dosage: START DATE:05-AUG-2008
     Route: 041
     Dates: start: 20080801

REACTIONS (2)
  - Posterior reversible encephalopathy syndrome [Recovering/Resolving]
  - COVID-19 [Unknown]

NARRATIVE: CASE EVENT DATE: 20220701
